FAERS Safety Report 14289916 (Version 1)
Quarter: 2017Q4

REPORT INFORMATION
  Report Type: Report from Study
  Country: None (occurrence: US)
  Receive Date: 20171215
  Receipt Date: 20171215
  Transmission Date: 20180321
  Serious: Yes (Other)
  Sender: FDA-Public Use
  Company Number: US-ABBVIE-17K-163-1830195-00

PATIENT
  Age: 24 Year
  Sex: Female
  Weight: 94.89 kg

DRUGS (1)
  1. HUMIRA [Suspect]
     Active Substance: ADALIMUMAB
     Indication: HIDRADENITIS
     Route: 058
     Dates: start: 20161230, end: 20161230

REACTIONS (4)
  - Gestational diabetes [Recovered/Resolved]
  - Live birth [Unknown]
  - Menstruation irregular [Unknown]
  - Exposure during pregnancy [Unknown]

NARRATIVE: CASE EVENT DATE: 201706
